FAERS Safety Report 9748657 (Version 2)
Quarter: 2013Q4

REPORT INFORMATION
  Report Type: Not Available
  Country: JP (occurrence: JP)
  Receive Date: 20131212
  Receipt Date: 20131212
  Transmission Date: 20140711
  Serious: Yes (Death, Life-Threatening, Hospitalization, Other)
  Sender: FDA-Public Use
  Company Number: JP-ASTELLAS-2010JP003737

PATIENT
  Age: 34 Year
  Sex: Male
  Weight: 60 kg

DRUGS (26)
  1. PROGRAF [Suspect]
     Indication: PROPHYLAXIS AGAINST TRANSPLANT REJECTION
     Dosage: UNK
     Route: 048
     Dates: start: 20030722, end: 20091225
  2. FUNGUARD [Suspect]
     Indication: PROPHYLAXIS
     Dosage: 150 MG, UNKNOWN/D
     Route: 065
     Dates: start: 20090907, end: 20091015
  3. FUNGUARD [Suspect]
     Dosage: 300 MG, UID/QD
     Route: 065
     Dates: start: 20091016, end: 20091221
  4. CELLCEPT [Suspect]
     Indication: PROPHYLAXIS AGAINST TRANSPLANT REJECTION
     Dosage: 500 MG, BID
     Route: 048
     Dates: start: 20030722, end: 20091222
  5. PREDONINE [Suspect]
     Indication: PROPHYLAXIS AGAINST TRANSPLANT REJECTION
     Dosage: 5 MG, BID
     Route: 048
     Dates: start: 20030722, end: 20100102
  6. ADALAT CR [Concomitant]
     Indication: HYPERTENSION
     Dosage: 20 MG, UID/QD
     Route: 048
     Dates: start: 20030722, end: 20100102
  7. MICARDIS [Concomitant]
     Indication: HYPERTENSION
     Dosage: 40 MG, UID/QD
     Route: 048
     Dates: start: 20030722, end: 20100102
  8. AMOBAN [Concomitant]
     Indication: INSOMNIA
     Dosage: 7.5 MG, UID/QD
     Route: 048
     Dates: start: 20030722, end: 20100102
  9. ZANTAC [Concomitant]
     Indication: PROPHYLAXIS
     Dosage: 150 MG, BID
     Route: 048
     Dates: start: 20030722, end: 20100102
  10. CALCIUM CARBONATE [Concomitant]
     Indication: PROPHYLAXIS
     Dosage: 500 MG, TID
     Route: 048
     Dates: start: 20030722, end: 20100102
  11. ENTERONON R [Concomitant]
     Indication: PROPHYLAXIS
     Dosage: 1 G, TID
     Route: 048
     Dates: start: 20030722, end: 20100102
  12. ZYLORIC [Concomitant]
     Indication: HYPERURICAEMIA
     Dosage: 100 MG, UID/QD
     Route: 048
     Dates: start: 20030722, end: 20100102
  13. KALIMATE [Concomitant]
     Indication: RENAL FAILURE CHRONIC
     Dosage: 5 G, TID
     Route: 048
     Dates: start: 20030722, end: 20100102
  14. ITRIZOLE [Concomitant]
     Indication: PROPHYLAXIS
     Dosage: 200 MG, BID
     Route: 048
     Dates: start: 20090808, end: 20091221
  15. MINOMYCIN [Concomitant]
     Indication: PROPHYLAXIS
     Dosage: 100 MG, BID
     Route: 048
     Dates: start: 20090904, end: 20100102
  16. NAUZELIN [Concomitant]
     Indication: PROPHYLAXIS
     Dosage: 10 MG, TID
     Route: 048
     Dates: start: 20070612, end: 20100102
  17. PURSENNID [Concomitant]
     Indication: CONSTIPATION
     Dosage: 12 MG, UID/QD
     Route: 048
     Dates: start: 20090805, end: 20100102
  18. MUCODYNE [Concomitant]
     Indication: BRONCHITIS CHRONIC
     Dosage: 250 MG, TID
     Route: 048
     Dates: start: 20090824, end: 20100102
  19. NOVORAPID [Concomitant]
     Indication: DIABETES MELLITUS
     Dosage: UNK U, TID
     Route: 058
     Dates: start: 20090907, end: 20100102
  20. ALFAROL [Concomitant]
     Indication: PROPHYLAXIS
     Dosage: 0.25 UG, UID/QD
     Route: 048
     Dates: start: 20030722, end: 20100102
  21. BAKTAR [Concomitant]
     Dosage: 1 DF, UID/QD
     Route: 048
     Dates: start: 20030722, end: 20100102
  22. FINIBAX [Concomitant]
     Dosage: 0.25 G, TID
     Route: 065
     Dates: start: 20090615, end: 20090906
  23. FINIBAX [Concomitant]
     Dosage: UNK
     Route: 041
     Dates: start: 20091011
  24. DENOSINE [Concomitant]
     Indication: CYTOMEGALOVIRUS INFECTION
     Dosage: UNK
     Route: 065
     Dates: start: 20090617, end: 20091220
  25. DENOSINE [Concomitant]
     Dosage: 60 MG, UNKNOWN/D
     Route: 065
     Dates: start: 20091221, end: 20091221
  26. DENOSINE [Concomitant]
     Dosage: 500 MG, UNKNOWN/D
     Route: 065
     Dates: start: 20091222, end: 20091226

REACTIONS (6)
  - Fungal sepsis [Fatal]
  - Scedosporium infection [Fatal]
  - Pulmonary mycosis [Fatal]
  - Meningitis [Fatal]
  - Nocardiosis [Recovered/Resolved]
  - Fungal endocarditis [Fatal]
